FAERS Safety Report 6534928-3 (Version None)
Quarter: 2010Q1

REPORT INFORMATION
  Report Type: 
  Country: None (occurrence: None)
  Receive Date: 20100112
  Receipt Date: 20100104
  Transmission Date: 20100710
  Serious: Yes (Other)
  Sender: FDA-Public Use
  Company Number: SE-ABBOTT-09P-150-0599452-00

PATIENT
  Sex: Female

DRUGS (3)
  1. ERGENYL [Suspect]
     Indication: BIPOLAR DISORDER
     Dates: start: 20050101, end: 20050101
  2. LAMOTRIGINE [Concomitant]
     Indication: DRUG USE FOR UNKNOWN INDICATION
  3. LITHIUM [Concomitant]
     Indication: DRUG USE FOR UNKNOWN INDICATION

REACTIONS (5)
  - CONFUSIONAL STATE [None]
  - DEMENTIA [None]
  - GAIT DISTURBANCE [None]
  - SALIVARY HYPERSECRETION [None]
  - SPEECH DISORDER [None]
